FAERS Safety Report 8105064-X (Version None)
Quarter: 2012Q1

REPORT INFORMATION
  Report Type: 
  Country: None (occurrence: None)
  Receive Date: 20120201
  Receipt Date: 20120123
  Transmission Date: 20120608
  Serious: Yes (Other)
  Sender: FDA-Public Use
  Company Number: US-ASTRAZENECA-2007UW20453

PATIENT
  Age: 91 Year
  Sex: Female

DRUGS (7)
  1. TOPROL-XL [Suspect]
     Dosage: CUTTING THE TABLET INTO HALF
     Route: 048
  2. CHOLESTEROL MEDICATION [Concomitant]
  3. BLOOD PRESSURE MEDICATION [Concomitant]
  4. METOPROLOL TARTRATE [Suspect]
     Dosage: GENERIC
     Route: 048
  5. PRILOSEC [Suspect]
     Route: 048
  6. VITAMIN D [Concomitant]
  7. TOPROL-XL [Suspect]
     Indication: HYPERTENSION
     Route: 048
     Dates: start: 20110101

REACTIONS (6)
  - MACULAR DEGENERATION [None]
  - DYSPHAGIA [None]
  - FATIGUE [None]
  - VISION BLURRED [None]
  - WRONG TECHNIQUE IN DRUG USAGE PROCESS [None]
  - ABDOMINAL DISCOMFORT [None]
